FAERS Safety Report 4743597-4 (Version None)
Quarter: 2005Q3

REPORT INFORMATION
  Report Type: 
  Country: None (occurrence: None)
  Receive Date: 20050810
  Receipt Date: 20050810
  Transmission Date: 20060218
  Serious: Yes (Hospitalization)
  Sender: FDA-Public Use
  Company Number: None

PATIENT
  Age: 56 Year
  Sex: Male
  Weight: 123.2 kg

DRUGS (17)
  1. LANOXIN [Suspect]
     Indication: CARDIAC FAILURE CONGESTIVE
     Dosage: ONE PO DAILY
     Route: 048
     Dates: start: 20031117
  2. METOPROLOL SUCCINATE [Suspect]
     Indication: HYPERTENSION
     Dosage: ONE PO DAILY
     Route: 048
     Dates: start: 20031121
  3. ALLOPURINOL [Concomitant]
  4. ACETAMINOPHEN [Concomitant]
  5. SERTRALINE HCL [Concomitant]
  6. TRAZODONE HCL [Concomitant]
  7. GABAPENTIN [Concomitant]
  8. GLIPIZIDE [Concomitant]
  9. SIMVASTATIN [Concomitant]
  10. FUROSEMIDE [Concomitant]
  11. COUMADIN [Concomitant]
  12. POTASSIUM CHLORIDE [Concomitant]
  13. SOTALOL HCL [Concomitant]
  14. MAGNESIUM OXIDE [Concomitant]
  15. HYDROCODONE 5/ACETAMINOPHEN [Concomitant]
  16. HUMULIN N [Concomitant]
  17. NOVOLIN N [Concomitant]

REACTIONS (3)
  - BRADYCARDIA [None]
  - DYSPNOEA [None]
  - FLUID OVERLOAD [None]
